FAERS Safety Report 5819247-2 (Version None)
Quarter: 2008Q3

REPORT INFORMATION
  Report Type: 
  Country: None (occurrence: None)
  Receive Date: 20080723
  Receipt Date: 20080710
  Transmission Date: 20090109
  Serious: Yes (Hospitalization, Other)
  Sender: FDA-Public Use
  Company Number: A0664859A

PATIENT
  Sex: Female
  Weight: 95.8 kg

DRUGS (1)
  1. BEXXAR [Suspect]
     Indication: NON-HODGKIN'S LYMPHOMA
     Dates: start: 20070515, end: 20070515

REACTIONS (4)
  - MYALGIA [None]
  - OEDEMA [None]
  - PYREXIA [None]
  - RESPIRATORY DISORDER [None]
